FAERS Safety Report 9901837 (Version 1)
Quarter: 2014Q1

REPORT INFORMATION
  Report Type: Spontaneous
  Country: CA (occurrence: CA)
  Receive Date: 20140217
  Receipt Date: 20140217
  Transmission Date: 20141002
  Serious: Yes (Other)
  Sender: FDA-Public Use
  Company Number: CA-GLAXOSMITHKLINE-A1060091A

PATIENT
  Age: 32 Year
  Sex: Female

DRUGS (1)
  1. ADVAIR HFA [Suspect]
     Indication: ASTHMA
     Route: 065

REACTIONS (4)
  - Gitelman^s syndrome [Unknown]
  - Blood potassium decreased [Unknown]
  - Convulsion [Unknown]
  - Adrenal suppression [Unknown]
